FAERS Safety Report 17394224 (Version 1)
Quarter: 2020Q1

REPORT INFORMATION
  Report Type: Spontaneous
  Country: US (occurrence: US)
  Receive Date: 20200210
  Receipt Date: 20200210
  Transmission Date: 20200409
  Serious: No
  Sender: FDA-Public Use
  Company Number: US-ELI_LILLY_AND_COMPANY-US202001008026

PATIENT
  Age: 71 Year
  Sex: Female

DRUGS (7)
  1. METFORMIN [Concomitant]
     Active Substance: METFORMIN HYDROCHLORIDE
     Indication: TYPE 1 DIABETES MELLITUS
     Dosage: 4 DOSAGE FORM, DAILY
  2. HUMALOG [Suspect]
     Active Substance: INSULIN LISPRO
     Dosage: 30 U, PRN
     Route: 058
  3. HUMALOG [Suspect]
     Active Substance: INSULIN LISPRO
     Indication: TYPE 1 DIABETES MELLITUS
     Dosage: 30 U, PRN
     Route: 058
  4. HUMALOG [Suspect]
     Active Substance: INSULIN LISPRO
     Dosage: 30 U, PRN
     Route: 058
  5. HUMALOG [Suspect]
     Active Substance: INSULIN LISPRO
     Dosage: 30 U, PRN
     Route: 058
  6. LEVEMIR [Concomitant]
     Active Substance: INSULIN DETEMIR
     Indication: TYPE 1 DIABETES MELLITUS
     Dosage: 36 U, DAILY
  7. HUMALOG [Suspect]
     Active Substance: INSULIN LISPRO
     Dosage: 30 U, PRN
     Route: 058

REACTIONS (4)
  - Blood glucose increased [Unknown]
  - Decreased appetite [Recovering/Resolving]
  - Sinusitis [Recovering/Resolving]
  - Malaise [Recovering/Resolving]
